FAERS Safety Report 24638812 (Version 1)
Quarter: 2024Q4

REPORT INFORMATION
  Report Type: Other
  Country: IT (occurrence: IT)
  Receive Date: 20241119
  Receipt Date: 20241119
  Transmission Date: 20250115
  Serious: Yes (Other)
  Sender: GUARDIAN DRUG COMPANY
  Company Number: IT-Guardian Drug Company-2165381

PATIENT
  Age: 27 Year
  Sex: Male

DRUGS (1)
  1. CHILDRENS IBUPROFEN [Suspect]
     Active Substance: IBUPROFEN
     Indication: Back pain
     Dates: start: 2023

REACTIONS (5)
  - Neurotoxicity [Recovered/Resolved]
  - Dizziness [Recovered/Resolved]
  - Strabismus [Recovered/Resolved]
  - Diplopia [Recovered/Resolved]
  - Toxicity to various agents [Recovered/Resolved]

NARRATIVE: CASE EVENT DATE: 20230101
